FAERS Safety Report 6139593-5 (Version None)
Quarter: 2009Q1

REPORT INFORMATION
  Report Type: 
  Country: None (occurrence: None)
  Receive Date: 20090331
  Receipt Date: 20090331
  Transmission Date: 20090719
  Serious: No
  Sender: FDA-Public Use
  Company Number: None

PATIENT
  Sex: Male
  Weight: 70.3 kg

DRUGS (2)
  1. CISPLATIN [Suspect]
     Dosage: 283 MG
     Dates: end: 20081209
  2. TAXOL [Suspect]
     Dosage: 564 MG
     Dates: end: 20081209

REACTIONS (1)
  - PULMONARY EMBOLISM [None]
